FAERS Safety Report 24736449 (Version 1)
Quarter: 2024Q4

REPORT INFORMATION
  Report Type: Spontaneous
  Country: ES (occurrence: ES)
  Receive Date: 20241216
  Receipt Date: 20241216
  Transmission Date: 20250115
  Serious: Yes (Other)
  Sender: IPCA
  Company Number: ES-IPCA LABORATORIES LIMITED-IPC-2024-ES-002885

PATIENT

DRUGS (1)
  1. CHLOROQUINE [Suspect]
     Active Substance: CHLOROQUINE
     Indication: Systemic lupus erythematosus
     Dosage: 155 MILLIGRAM, QD
     Route: 065
     Dates: start: 2000

REACTIONS (4)
  - Retinitis pigmentosa [Not Recovered/Not Resolved]
  - Retinopathy [Not Recovered/Not Resolved]
  - Condition aggravated [Not Recovered/Not Resolved]
  - Maculopathy [Not Recovered/Not Resolved]
